FAERS Safety Report 6428301-6 (Version None)
Quarter: 2009Q4

REPORT INFORMATION
  Report Type: 
  Country: None (occurrence: None)
  Receive Date: 20091030
  Receipt Date: 20091022
  Transmission Date: 20100525
  Serious: Yes (Life-Threatening, Other)
  Sender: FDA-Public Use
  Company Number: ADR47442009

PATIENT
  Sex: Female

DRUGS (1)
  1. ALENDRONIC ACID TABLETS 10 MG (MAH: ARROW GENERICS LTD.) [Suspect]
     Dosage: 10 MG

REACTIONS (1)
  - OESOPHAGEAL CARCINOMA [None]
